FAERS Safety Report 6557182-5 (Version None)
Quarter: 2010Q1

REPORT INFORMATION
  Report Type: 
  Country: None (occurrence: None)
  Receive Date: 20100128
  Receipt Date: 20100122
  Transmission Date: 20100710
  Serious: Yes (Hospitalization)
  Sender: FDA-Public Use
  Company Number: FR-B.I. PHARMACEUTICALS,INC./RIDGEFIELD-2010-BP-01045YA

PATIENT
  Sex: Male

DRUGS (13)
  1. OMIX L.P. [Suspect]
     Route: 048
  2. ABILIFY [Suspect]
     Dates: end: 20100115
  3. FENOFIBRATE [Suspect]
     Route: 048
     Dates: end: 20100115
  4. MEDIATOR [Suspect]
     Route: 048
     Dates: end: 20100115
  5. EUPANTOL [Suspect]
     Route: 048
     Dates: end: 20100115
  6. IMPRIM [Suspect]
     Route: 048
     Dates: start: 19960101
  7. MEPRONIZINE [Suspect]
     Route: 048
  8. IMPORTAL [Suspect]
  9. TRANXENE [Suspect]
     Route: 048
  10. IMOVANE [Suspect]
     Route: 048
  11. AVLOCARDYL [Suspect]
     Route: 048
  12. LAROXYL [Suspect]
     Route: 048
  13. MYCOSTER [Suspect]

REACTIONS (1)
  - PANCREATITIS ACUTE [None]
